FAERS Safety Report 20375869 (Version 2)
Quarter: 2022Q1

REPORT INFORMATION
  Report Type: Spontaneous
  Country: US (occurrence: US)
  Receive Date: 20220125
  Receipt Date: 20220215
  Transmission Date: 20220424
  Serious: Yes (Other)
  Sender: FDA-Public Use
  Company Number: US-ORGANON-O2201USA001597

PATIENT
  Age: 31 Year
  Sex: Female
  Weight: 101.13 kg

DRUGS (1)
  1. NEXPLANON [Suspect]
     Active Substance: ETONOGESTREL
     Indication: Contraception
     Dosage: 1 DOSAGE FORM, EVERY 3 YEARS, RIGHT ARM
     Route: 059
     Dates: start: 20211130

REACTIONS (6)
  - Thrombosis [Recovering/Resolving]
  - Coagulation time prolonged [Recovering/Resolving]
  - Device issue [Not Recovered/Not Resolved]
  - Complication associated with device [Not Recovered/Not Resolved]
  - Complication of device removal [Not Recovered/Not Resolved]
  - Implant site haematoma [Recovering/Resolving]

NARRATIVE: CASE EVENT DATE: 20220110
